FAERS Safety Report 8900345 (Version 1)
Quarter: 2012Q4

REPORT INFORMATION
  Report Type: 
  Country: US (occurrence: US)
  Receive Date: 20121108
  Receipt Date: 20121108
  Transmission Date: 20130627
  Serious: No
  Sender: FDA-Public Use
  Company Number: US-AMGEN-USASP2012037884

PATIENT
  Age: 44 Year
  Sex: Male
  Weight: 84.35 kg

DRUGS (7)
  1. ENBREL [Suspect]
     Indication: PSORIASIS
     Dosage: 50 mg, qwk
     Route: 058
  2. METHOTREXATE [Concomitant]
     Dosage: 2.5 mg, UNK
  3. PREDNISONE [Concomitant]
  4. NABUMETONE [Concomitant]
     Dosage: 500 mg, UNK
  5. BYSTOLIC [Concomitant]
     Dosage: 10 mg, UNK
  6. FLINTSTONES COMPLETE [Concomitant]
  7. FOLIC ACID [Concomitant]

REACTIONS (2)
  - Pruritus [Unknown]
  - Injection site pain [Unknown]
